FAERS Safety Report 5862364-1 (Version None)
Quarter: 2008Q3

REPORT INFORMATION
  Report Type: 
  Country: None (occurrence: None)
  Receive Date: 20080828
  Receipt Date: 20080819
  Transmission Date: 20090109
  Serious: Yes (Hospitalization, Other)
  Sender: FDA-Public Use
  Company Number: GB-JNJFOC-20080804298

PATIENT
  Sex: Male
  Weight: 68 kg

DRUGS (9)
  1. REMICADE [Suspect]
     Indication: RHEUMATOID ARTHRITIS
     Dosage: INFUSION DATES AND NUMBER OF INFUSIONS UNKNOWN.
     Route: 042
  2. METHOTREXATE SODIUM [Concomitant]
     Dosage: DOSE NOT PROVIDED.
  3. LEFLUNOMIDE [Concomitant]
     Dosage: DOSE NOT PROVIDED.
  4. ATENOLOL [Concomitant]
  5. BRUFEN [Concomitant]
  6. FOLIC ACID [Concomitant]
  7. OMEPRAZOLE [Concomitant]
  8. RAMIPRIL [Concomitant]
  9. SIMVASTATIN [Concomitant]

REACTIONS (4)
  - ANGINA PECTORIS [None]
  - CHEST PAIN [None]
  - MYALGIA [None]
  - WEIGHT DECREASED [None]
